FAERS Safety Report 9375933 (Version 2)
Quarter: 2013Q3

REPORT INFORMATION
  Report Type: Spontaneous
  Country: US (occurrence: US)
  Receive Date: 20130628
  Receipt Date: 20130730
  Transmission Date: 20140515
  Serious: No
  Sender: FDA-Public Use
  Company Number: US-009507513-1306USA010472

PATIENT
  Age: 23 Year
  Sex: Female

DRUGS (1)
  1. NUVARING [Suspect]
     Indication: CONTRACEPTION
     Dosage: 1 DF, UNK
     Dates: start: 20130607, end: 20130617

REACTIONS (5)
  - Angina pectoris [Unknown]
  - Mood altered [Unknown]
  - Irritability [Unknown]
  - Withdrawal bleed [Unknown]
  - Dysmenorrhoea [Unknown]
